FAERS Safety Report 8073092-9 (Version None)
Quarter: 2012Q1

REPORT INFORMATION
  Report Type: 
  Country: None (occurrence: None)
  Receive Date: 20120126
  Receipt Date: 20120123
  Transmission Date: 20120608
  Serious: Yes (Other)
  Sender: FDA-Public Use
  Company Number: BR-BAYER-2012-008139

PATIENT
  Age: 54 Year
  Sex: Male

DRUGS (2)
  1. BETASERON [Suspect]
     Indication: MULTIPLE SCLEROSIS
     Dosage: 1 ML, UNK
     Route: 058
     Dates: start: 20110301
  2. HIXIZINE [Concomitant]
     Indication: HYPERSENSITIVITY
     Dosage: 2 DF, TID
     Route: 048
     Dates: start: 20090101

REACTIONS (6)
  - DIZZINESS [None]
  - INJECTION SITE SWELLING [None]
  - INSOMNIA [None]
  - INJECTION SITE HAEMATOMA [None]
  - INJECTION SITE PAIN [None]
  - PURULENT DISCHARGE [None]
